FAERS Safety Report 9091783 (Version 1)
Quarter: 2013Q1

REPORT INFORMATION
  Report Type: Report from Study
  Country: US (occurrence: US)
  Receive Date: 20130130
  Receipt Date: 20130130
  Transmission Date: 20140127
  Serious: No
  Sender: FDA-Public Use
  Company Number: US-ABBOTT-12P-163-0979870-00

PATIENT
  Age: 38 Year
  Sex: Female

DRUGS (14)
  1. HUMIRA [Suspect]
     Indication: RHEUMATOID ARTHRITIS
     Dates: start: 20120913
  2. HUMIRA [Suspect]
     Indication: PSORIASIS
  3. TRILEPTAL [Concomitant]
     Indication: CONVULSION
  4. ICAR-C PLUS [Concomitant]
     Indication: ANAEMIA
     Dosage: 1 EVERY OTHER DAY
  5. NEXIUM [Concomitant]
     Indication: GASTRIC DISORDER
  6. ASPIRIN [Concomitant]
     Indication: CEREBROVASCULAR ACCIDENT PROPHYLAXIS
  7. ASPIRIN [Concomitant]
     Indication: ATRIAL SEPTAL DEFECT
  8. SINGULAIR [Concomitant]
     Indication: ASTHMA
  9. ZOCOR [Concomitant]
     Indication: BLOOD CHOLESTEROL
     Dosage: 1/2 TAB DAILY
  10. METHOTREXATE [Concomitant]
     Indication: RHEUMATOID ARTHRITIS
     Dosage: 7 TABS WEEKLY
  11. METHOTREXATE [Concomitant]
     Indication: PUSTULAR PSORIASIS
  12. FOLIC ACID [Concomitant]
     Indication: MOUTH ULCERATION
  13. VITAMIN D [Concomitant]
     Indication: VITAMIN SUPPLEMENTATION
  14. SIMVASTATIN [Concomitant]
     Indication: PRODUCT USED FOR UNKNOWN INDICATION
     Dosage: 1/2 TAB DAILY

REACTIONS (3)
  - Pyrexia [Recovered/Resolved]
  - Arthralgia [Recovering/Resolving]
  - Rheumatoid arthritis [Unknown]
